FAERS Safety Report 16640514 (Version 1)
Quarter: 2019Q3

REPORT INFORMATION
  Report Type: Report from Study
  Country: US (occurrence: US)
  Receive Date: 20190729
  Receipt Date: 20190729
  Transmission Date: 20191004
  Serious: Yes (Other)
  Sender: FDA-Public Use
  Company Number: US-ROCHE-2362626

PATIENT

DRUGS (5)
  1. ALTEPLASE. [Suspect]
     Active Substance: ALTEPLASE
     Dosage: THIRD HOUR
     Route: 040
  2. PLACEBO [Suspect]
     Active Substance: UNSPECIFIED INGREDIENT
     Indication: ACUTE MYOCARDIAL INFARCTION
     Route: 042
  3. ALTEPLASE. [Suspect]
     Active Substance: ALTEPLASE
     Indication: ACUTE MYOCARDIAL INFARCTION
     Dosage: FIRST HOUR
     Route: 040
  4. ALTEPLASE. [Suspect]
     Active Substance: ALTEPLASE
     Dosage: SECOND HOUR
     Route: 040
  5. HEPARIN SODIUM. [Concomitant]
     Active Substance: HEPARIN SODIUM

REACTIONS (4)
  - Seizure [Unknown]
  - Urogenital haemorrhage [Unknown]
  - Gastrointestinal haemorrhage [Unknown]
  - Retroperitoneal haemorrhage [Unknown]
